FAERS Safety Report 21286925 (Version 1)
Quarter: 2022Q3

REPORT INFORMATION
  Report Type: Spontaneous
  Country: US (occurrence: None)
  Receive Date: 20220902
  Receipt Date: 20220902
  Transmission Date: 20221027
  Serious: Yes (Death, Hospitalization)
  Sender: FDA-Public Use
  Company Number: None

PATIENT
  Age: 45 Year
  Sex: Male
  Weight: 111 kg

DRUGS (1)
  1. RITUXIMAB [Suspect]
     Active Substance: RITUXIMAB
     Dates: end: 20211206

REACTIONS (9)
  - Dyspnoea [None]
  - Lethargy [None]
  - Fatigue [None]
  - Chills [None]
  - SARS-CoV-2 test positive [None]
  - COVID-19 pneumonia [None]
  - Chest pain [None]
  - Tachypnoea [None]
  - Septic shock [None]

NARRATIVE: CASE EVENT DATE: 20220209
